FAERS Safety Report 11222339 (Version 1)
Quarter: 2015Q2

REPORT INFORMATION
  Report Type: Spontaneous
  Country: US (occurrence: US)
  Receive Date: 20150626
  Receipt Date: 20150626
  Transmission Date: 20150821
  Serious: No
  Sender: FDA-Public Use
  Company Number: US-009507513-1506USA011252

PATIENT
  Age: 17 Year
  Sex: Female
  Weight: 58.96 kg

DRUGS (1)
  1. NEXPLANON [Suspect]
     Active Substance: ETONOGESTREL
     Indication: MENSTRUAL CYCLE MANAGEMENT
     Dosage: 1 ROD UP TO 3 YEARS
     Route: 059
     Dates: start: 20140422

REACTIONS (4)
  - Muscle spasms [Not Recovered/Not Resolved]
  - Dysmenorrhoea [Unknown]
  - Drug administration error [Unknown]
  - Menorrhagia [Not Recovered/Not Resolved]

NARRATIVE: CASE EVENT DATE: 20140422
